FAERS Safety Report 5432969-0 (Version None)
Quarter: 2007Q3

REPORT INFORMATION
  Report Type: 
  Country: None (occurrence: None)
  Receive Date: 20070831
  Receipt Date: 20070822
  Transmission Date: 20080115
  Serious: Yes (Life-Threatening, Hospitalization)
  Sender: FDA-Public Use
  Company Number: CH-JNJFOC-20070801230

PATIENT
  Sex: Female
  Weight: 51 kg

DRUGS (10)
  1. ETRAVIRINE [Suspect]
  2. ETRAVIRINE [Suspect]
     Indication: HIV INFECTION
  3. PREZISTA [Suspect]
     Indication: HIV INFECTION
     Route: 048
  4. AZITHROMYCIN [Suspect]
     Route: 048
  5. AZITHROMYCIN [Suspect]
     Indication: PROPHYLAXIS
     Route: 048
  6. BACTRIM [Suspect]
     Indication: DRUG USE FOR UNKNOWN INDICATION
     Route: 065
  7. RITONAVIR [Concomitant]
     Indication: HIV INFECTION
     Route: 048
  8. FUZEON [Concomitant]
     Indication: HIV INFECTION
     Route: 058
  9. COTRIM [Concomitant]
     Route: 048
  10. COTRIM [Concomitant]
     Indication: PROPHYLAXIS
     Route: 048

REACTIONS (1)
  - PANCYTOPENIA [None]
